FAERS Safety Report 6361557-7 (Version None)
Quarter: 2009Q3

REPORT INFORMATION
  Report Type: 
  Country: None (occurrence: None)
  Receive Date: 20090918
  Receipt Date: 20090909
  Transmission Date: 20100115
  Serious: Yes (Other)
  Sender: FDA-Public Use
  Company Number: JP-PFIZER INC-2009267855

PATIENT
  Age: 70 Year

DRUGS (2)
  1. NORVASC [Suspect]
     Indication: HYPERTENSION
     Dosage: 5 MG DAILY
     Route: 048
     Dates: start: 19970101, end: 20090901
  2. URIEF [Concomitant]
     Dosage: UNK
     Route: 048

REACTIONS (1)
  - BLINDNESS [None]
